FAERS Safety Report 4608473-6 (Version None)
Quarter: 2005Q1

REPORT INFORMATION
  Report Type: 
  Country: None (occurrence: None)
  Receive Date: 20050315
  Receipt Date: 20041201
  Transmission Date: 20050727
  Serious: Yes (Disabling)
  Sender: FDA-Public Use
  Company Number: US-GLAXOSMITHKLINE-A0536239A

PATIENT
  Age: 57 Year
  Sex: Female
  Weight: 78.2 kg

DRUGS (5)
  1. PAXIL [Suspect]
     Indication: HOT FLUSH
     Dosage: 20MG PER DAY
     Route: 048
     Dates: start: 20040109, end: 20040801
  2. PREMARIN [Concomitant]
     Indication: HOT FLUSH
     Dosage: .3MG UNKNOWN
     Route: 048
     Dates: end: 20031101
  3. RITALIN [Concomitant]
     Dosage: 20MG THREE TIMES PER DAY
     Route: 048
  4. ALLEGRA [Concomitant]
     Dosage: 180MG PER DAY
     Route: 048
  5. TAZORAC [Concomitant]
     Route: 061

REACTIONS (16)
  - ANXIETY [None]
  - ASTHENIA [None]
  - BLOOD PRESSURE INCREASED [None]
  - DIZZINESS [None]
  - DRUG WITHDRAWAL SYNDROME [None]
  - HEADACHE [None]
  - HOT FLUSH [None]
  - HYPERHIDROSIS [None]
  - IMPAIRED DRIVING ABILITY [None]
  - INSOMNIA [None]
  - MEMORY IMPAIRMENT [None]
  - MENTAL DISORDER [None]
  - NAUSEA [None]
  - PARAESTHESIA [None]
  - SENSATION OF FOREIGN BODY [None]
  - WEIGHT INCREASED [None]
